FAERS Safety Report 17186803 (Version 3)
Quarter: 2019Q4

REPORT INFORMATION
  Report Type: Report from Study
  Country: JP (occurrence: JP)
  Receive Date: 20191220
  Receipt Date: 20191227
  Transmission Date: 20200122
  Serious: Yes (Other)
  Sender: FDA-Public Use
  Company Number: JP-JNJFOC-20191220562

PATIENT

DRUGS (2)
  1. SIMPONI [Suspect]
     Active Substance: GOLIMUMAB
     Indication: RHEUMATOID ARTHRITIS
     Route: 058
  2. REMICADE [Suspect]
     Active Substance: INFLIXIMAB
     Indication: RHEUMATOID ARTHRITIS
     Route: 042

REACTIONS (8)
  - Drug ineffective [Unknown]
  - Interstitial lung disease [Unknown]
  - Neoplasm malignant [Unknown]
  - Bronchiectasis [Unknown]
  - Pneumonia bacterial [Unknown]
  - Cellulitis [Unknown]
  - Pneumocystis jirovecii pneumonia [Unknown]
  - Exposure during pregnancy [Unknown]
